FAERS Safety Report 16688600 (Version 1)
Quarter: 2019Q3

REPORT INFORMATION
  Report Type: Spontaneous
  Country: JP (occurrence: JP)
  Receive Date: 20190809
  Receipt Date: 20190809
  Transmission Date: 20191004
  Serious: Yes (Other)
  Sender: FDA-Public Use
  Company Number: JP-ROCHE-2374022

PATIENT
  Age: 74 Year
  Sex: Female

DRUGS (1)
  1. ALTEPLASE. [Suspect]
     Active Substance: ALTEPLASE
     Indication: CEREBRAL INFARCTION
     Route: 042

REACTIONS (3)
  - Cerebellar haematoma [Unknown]
  - Aneurysm ruptured [Unknown]
  - Subarachnoid haemorrhage [Unknown]
